FAERS Safety Report 8096015 (Version 2)
Quarter: 2013Q3

REPORT INFORMATION
  Report Type: Spontaneous
  Country: BR (occurrence: BR)
  Receive Date: 20110818
  Receipt Date: 20130724
  Transmission Date: 20140515
  Serious: No
  Sender: FDA-Public Use
  Company Number: BR-ROCHE-796681

PATIENT
  Sex: Female

DRUGS (2)
  1. ROACUTAN [Suspect]
     Indication: ACNE
     Dosage: FREQUENCY: PER DAY
     Route: 048
     Dates: start: 201012, end: 201108
  2. DIANE-35 [Concomitant]
     Indication: CONTRACEPTION
     Route: 048

REACTIONS (2)
  - Pregnancy [Unknown]
  - No adverse event [Unknown]
